FAERS Safety Report 4595475-1 (Version None)
Quarter: 2005Q1

REPORT INFORMATION
  Report Type: 
  Country: None (occurrence: None)
  Receive Date: 20050302
  Receipt Date: 20050218
  Transmission Date: 20050727
  Serious: Yes (Death, Life-Threatening, Hospitalization)
  Sender: FDA-Public Use
  Company Number: CO-JNJFOC-20050205546

PATIENT
  Sex: Male
  Weight: 50 kg

DRUGS (5)
  1. REMICADE [Suspect]
     Indication: RHEUMATOID ARTHRITIS
     Route: 042
  2. PREDNISOLONE [Concomitant]
     Indication: RHEUMATOID ARTHRITIS
     Route: 049
  3. CLOROQUINE [Concomitant]
     Indication: RHEUMATOID ARTHRITIS
     Route: 049
  4. METHOTREXATE [Concomitant]
     Indication: RHEUMATOID ARTHRITIS
     Route: 049
  5. DICLOPHENAC [Concomitant]
     Indication: RHEUMATOID ARTHRITIS
     Route: 049

REACTIONS (2)
  - CARDIO-RESPIRATORY ARREST [None]
  - PULMONARY TUBERCULOSIS [None]
